FAERS Safety Report 5558967-4 (Version None)
Quarter: 2007Q4

REPORT INFORMATION
  Report Type: 
  Country: None (occurrence: None)
  Receive Date: 20071214
  Receipt Date: 20070913
  Transmission Date: 20080405
  Serious: No
  Sender: FDA-Public Use
  Company Number: US-ABBOTT-07P-163-0417258-00

PATIENT
  Sex: Female
  Weight: 92.7 kg

DRUGS (5)
  1. HUMIRA [Suspect]
     Indication: COLITIS
     Route: 058
     Dates: start: 20070201
  2. AZATHIOPRINE [Concomitant]
     Indication: COLITIS
     Route: 048
  3. BALSALAZIDE DISODIUM [Concomitant]
     Indication: COLITIS
     Route: 048
  4. PAROXETINE HCL [Concomitant]
     Indication: ANXIETY
     Route: 048
  5. MULTI-VITAMIN [Concomitant]
     Indication: VITAMIN SUPPLEMENTATION
     Route: 048

REACTIONS (1)
  - WEIGHT INCREASED [None]
